FAERS Safety Report 25951916 (Version 3)
Quarter: 2025Q4

REPORT INFORMATION
  Report Type: Spontaneous
  Country: EU (occurrence: EU)
  Receive Date: 20251023
  Receipt Date: 20251126
  Transmission Date: 20260118
  Serious: Yes (Life-Threatening, Hospitalization, Other)
  Sender: AUROBINDO
  Company Number: EU-JUVISE-2025000608

PATIENT
  Age: 82 Year
  Sex: Female
  Weight: 80 kg

DRUGS (6)
  1. ANASTROZOLE [Suspect]
     Active Substance: ANASTROZOLE
     Indication: Breast cancer
     Dosage: 1 MILLIGRAM, ONCE A DAY
     Dates: start: 20211004, end: 20211219
  2. LETROZOLE [Suspect]
     Active Substance: LETROZOLE
     Indication: Breast cancer
     Dosage: 2.5 MILLIGRAM, ONCE A DAY
     Dates: start: 20211220, end: 20240814
  3. EXEMESTANE [Suspect]
     Active Substance: EXEMESTANE
     Indication: Breast cancer
     Dosage: 25 MILLIGRAM, ONCE A DAY
     Dates: start: 20240815, end: 20250910
  4. PALBOCICLIB [Suspect]
     Active Substance: PALBOCICLIB
     Indication: Breast cancer
     Dosage: 100 MILLIGRAM, ONCE A DAY
     Dates: start: 20211004
  5. PALBOCICLIB [Suspect]
     Active Substance: PALBOCICLIB
     Dosage: 125 MILLIGRAM, ONCE A DAY
     Dates: start: 20211129, end: 20220213
  6. PALBOCICLIB [Suspect]
     Active Substance: PALBOCICLIB
     Dosage: THIRD REGIMENT : 100 MG DAILY FROM DAY 1 TO DAY 21 EVERY 28- DAY CYCLE
     Dates: start: 20220221

REACTIONS (2)
  - Lung neoplasm malignant [Recovered/Resolved]
  - Second primary malignancy [Recovered/Resolved]

NARRATIVE: CASE EVENT DATE: 20250912
